FAERS Safety Report 21321025 (Version 2)
Quarter: 2022Q4

REPORT INFORMATION
  Report Type: Spontaneous
  Country: US (occurrence: US)
  Receive Date: 20220912
  Receipt Date: 20221102
  Transmission Date: 20230112
  Serious: Yes (Other)
  Sender: FDA-Public Use
  Company Number: US-JNJFOC-20220913874

PATIENT
  Age: 4 Decade
  Sex: Female

DRUGS (4)
  1. ELMIRON [Suspect]
     Active Substance: PENTOSAN POLYSULFATE SODIUM
     Indication: Cystitis interstitial
     Route: 048
     Dates: start: 201602, end: 202010
  2. CYMBALTA [Concomitant]
     Active Substance: DULOXETINE HYDROCHLORIDE
     Indication: Depression
     Dates: start: 2019, end: 2021
  3. ESTRADIOL [Concomitant]
     Active Substance: ESTRADIOL
     Indication: Hormone therapy
     Dates: start: 2017, end: 2021
  4. HYOSCYAMINE [Concomitant]
     Active Substance: HYOSCYAMINE
     Dates: start: 2019, end: 2021

REACTIONS (1)
  - Retinal pigmentation [Unknown]

NARRATIVE: CASE EVENT DATE: 20200101
